FAERS Safety Report 6711042-5 (Version None)
Quarter: 2010Q2

REPORT INFORMATION
  Report Type: 
  Country: None (occurrence: None)
  Receive Date: 20100505
  Receipt Date: 20100423
  Transmission Date: 20101027
  Serious: Yes (Hospitalization, Other)
  Sender: FDA-Public Use
  Company Number: US-JNJFOC-20100210635

PATIENT
  Sex: Female

DRUGS (2)
  1. LEVAQUIN [Suspect]
     Indication: KIDNEY INFECTION
     Route: 048
  2. PREDNISONE [Suspect]
     Indication: ARTHRALGIA
     Route: 065

REACTIONS (3)
  - EPICONDYLITIS [None]
  - MENTAL DISORDER [None]
  - TENDONITIS [None]
